FAERS Safety Report 16640193 (Version 1)
Quarter: 2019Q3

REPORT INFORMATION
  Report Type: Spontaneous
  Country: GB (occurrence: GB)
  Receive Date: 20190728
  Receipt Date: 20190728
  Transmission Date: 20191004
  Serious: Yes (Hospitalization)
  Sender: FDA-Public Use
  Company Number: GB-DEXPHARM-20190576

PATIENT
  Age: 67 Year
  Sex: Female

DRUGS (14)
  1. SALBUTAMOL [Concomitant]
     Active Substance: ALBUTEROL
     Dosage: AS NECESSARY
  2. MONOMIL XL [Concomitant]
     Active Substance: ISOSORBIDE MONONITRATE
     Dosage: AT NIGHT
  3. ZOPICLONE [Concomitant]
     Active Substance: ZOPICLONE
     Dosage: AT NIGHT
  4. OMEPRAZOLE. [Interacting]
     Active Substance: OMEPRAZOLE
     Indication: PRODUCT USED FOR UNKNOWN INDICATION
     Dosage: AT NIGHT
  5. ATORVASTATIN [Concomitant]
     Active Substance: ATORVASTATIN
     Dosage: AT NIGHT
  6. MONTELUKAST [Concomitant]
     Active Substance: MONTELUKAST SODIUM
     Dosage: AT NIGHT
  7. ACETYLSALICYLIC ACID [Concomitant]
     Active Substance: ASPIRIN
     Dosage: AT NIGHT
  8. BISOPROLOL [Concomitant]
     Active Substance: BISOPROLOL
     Dosage: AT NIGHT
  9. SALAZOPYRIN [Concomitant]
     Active Substance: SULFASALAZINE
  10. NICORANDIL [Concomitant]
     Active Substance: NICORANDIL
  11. BRALTUS [Concomitant]
     Active Substance: TIOTROPIUM BROMIDE
     Route: 055
  12. PERINDOPRIL [Concomitant]
     Active Substance: PERINDOPRIL
     Dosage: AT NIGHT
  13. FUROSEMIDE. [Suspect]
     Active Substance: FUROSEMIDE
     Indication: PRODUCT USED FOR UNKNOWN INDICATION
     Dosage: AT NIGHT
  14. SERETIDE [Concomitant]
     Active Substance: FLUTICASONE PROPIONATE\SALMETEROL XINAFOATE
     Dosage: AT NIGHT
     Route: 055

REACTIONS (2)
  - Hyponatraemia [Unknown]
  - Drug interaction [Unknown]
